FAERS Safety Report 6411598-6 (Version None)
Quarter: 2009Q4

REPORT INFORMATION
  Report Type: 
  Country: None (occurrence: None)
  Receive Date: 20091023
  Receipt Date: 20091013
  Transmission Date: 20100525
  Serious: Yes (Death)
  Sender: FDA-Public Use
  Company Number: PL-PFIZER INC-2009216214

PATIENT
  Age: 66 Year

DRUGS (8)
  1. *PREDNISONE [Suspect]
     Indication: PROSTATE CANCER
     Dosage: 5 MG, 2X/DAY
     Route: 048
     Dates: start: 20090324, end: 20090516
  2. BLINDED *NO SUBJECT DRUG [Suspect]
     Indication: PROSTATE CANCER
     Dosage: 37.5 MG, 1X/DAY
     Route: 048
     Dates: start: 20090324, end: 20090518
  3. BLINDED *PLACEBO [Suspect]
     Indication: PROSTATE CANCER
     Dosage: 37.5 MG, 1X/DAY
     Route: 048
     Dates: start: 20090324, end: 20090518
  4. BLINDED SUNITINIB MALATE [Suspect]
     Indication: PROSTATE CANCER
     Dosage: 37.5 MG, 1X/DAY
     Route: 048
     Dates: start: 20090324, end: 20090518
  5. KETOPROFEN [Concomitant]
     Indication: PAIN
     Dosage: 100 MG, UNK
     Route: 048
  6. MORPHIN [Concomitant]
     Indication: PAIN
     Dosage: UNK MG
     Route: 048
  7. INSULIN [Concomitant]
     Indication: DIABETES MELLITUS
     Route: 058
     Dates: start: 20090101
  8. TRIPTORELIN [Concomitant]
     Dosage: 11.25 MG, EVERY 4 HRS

REACTIONS (1)
  - SUDDEN CARDIAC DEATH [None]
